FAERS Safety Report 9869984 (Version 1)
Quarter: 2014Q1

REPORT INFORMATION
  Report Type: Spontaneous
  Country: US (occurrence: US)
  Receive Date: 20140205
  Receipt Date: 20140205
  Transmission Date: 20141002
  Serious: No
  Sender: FDA-Public Use
  Company Number: US-GLAXOSMITHKLINE-A1012673A

PATIENT
  Sex: Male

DRUGS (11)
  1. VALTREX [Suspect]
     Indication: HERPES ZOSTER
     Dosage: 1G TWICE PER DAY
     Route: 048
     Dates: start: 1998
  2. ALPRAZOLAM [Concomitant]
  3. DIAZEPAM [Concomitant]
  4. SOMA [Concomitant]
  5. OXYCODONE [Concomitant]
  6. SIMVASTATIN [Concomitant]
  7. BENAZEPRIL [Concomitant]
  8. VITAMIN D [Concomitant]
  9. DORYX [Concomitant]
  10. CELEXA [Concomitant]
  11. ALLEGRA [Concomitant]

REACTIONS (6)
  - Herpes zoster [Not Recovered/Not Resolved]
  - Skin lesion [Unknown]
  - Purulent discharge [Unknown]
  - Rash pustular [Unknown]
  - Rash pruritic [Unknown]
  - Blister [Unknown]
